FAERS Safety Report 5786232-9 (Version None)
Quarter: 2008Q2

REPORT INFORMATION
  Report Type: 
  Country: None (occurrence: None)
  Receive Date: 20080624
  Receipt Date: 20080612
  Transmission Date: 20081010
  Serious: Yes (Congenital Anomaly, Other)
  Sender: FDA-Public Use
  Company Number: US-PFIZER INC-2007095378

PATIENT
  Sex: Female

DRUGS (6)
  1. ZOLOFT [Suspect]
     Indication: TENSION HEADACHE
  2. ZOLOFT [Suspect]
     Indication: DEPRESSION
  3. ZOLOFT [Suspect]
     Indication: INSOMNIA
  4. ZOLOFT [Suspect]
     Indication: DRUG INTOLERANCE
  5. PAXIL [Concomitant]
  6. PROZAC [Concomitant]

REACTIONS (3)
  - DRUG EXPOSURE DURING PREGNANCY [None]
  - POST-TRAUMATIC STRESS DISORDER [None]
  - VENTRICULAR SEPTAL DEFECT [None]
